FAERS Safety Report 6134218-7 (Version None)
Quarter: 2009Q1

REPORT INFORMATION
  Report Type: 
  Country: None (occurrence: None)
  Receive Date: 20090326
  Receipt Date: 20090326
  Transmission Date: 20090719
  Serious: Yes (Death, Hospitalization, Other)
  Sender: FDA-Public Use
  Company Number: US-PFIZER INC-2008094459

PATIENT
  Sex: Female
  Weight: 90.7 kg

DRUGS (14)
  1. LYRICA [Suspect]
     Indication: FIBROMYALGIA
     Dosage: UNK
     Dates: start: 20081001
  2. CALCIUM WITH VITAMIN D [Concomitant]
  3. ACETYLSALICYLIC ACID [Concomitant]
  4. OLMESARTAN [Concomitant]
  5. AMLODIPINE [Concomitant]
     Dosage: 10 MG, UNK
  6. HYDROCHLOROTHIAZIDE [Concomitant]
  7. WARFARIN [Concomitant]
  8. ATENOLOL [Concomitant]
  9. TERAZOSIN [Concomitant]
  10. METFORMIN [Concomitant]
  11. GLYBURIDE [Concomitant]
  12. NIASPAN [Concomitant]
  13. LOVASTATIN [Concomitant]
  14. LISINOPRIL [Concomitant]

REACTIONS (5)
  - BIOPSY LUNG [None]
  - BODY TEMPERATURE FLUCTUATION [None]
  - DEATH [None]
  - INFECTION [None]
  - PULMONARY OEDEMA [None]
